FAERS Safety Report 24686852 (Version 1)
Quarter: 2024Q4

REPORT INFORMATION
  Report Type: Spontaneous
  Country: CH (occurrence: CH)
  Receive Date: 20241202
  Receipt Date: 20241202
  Transmission Date: 20250115
  Serious: Yes (Hospitalization, Other)
  Sender: MYLAN
  Company Number: None

PATIENT
  Age: 23 Year
  Sex: Female

DRUGS (22)
  1. GABAPENTIN [Suspect]
     Active Substance: GABAPENTIN
     Indication: Product used for unknown indication
     Dosage: 300 MILLIGRAM, Q8H (300 MG 1 TAB MORNING, MIDDAY AND EVENING)
     Route: 048
  2. GABAPENTIN [Suspect]
     Active Substance: GABAPENTIN
     Indication: Product used for unknown indication
     Dosage: 800 MILLIGRAM, QD (400 MG 2 TAB AT NIGHT)
     Route: 048
  3. PANTOPRAZOLE [Suspect]
     Active Substance: PANTOPRAZOLE
     Indication: Product used for unknown indication
     Dosage: UNK
     Route: 048
  4. COLCHICINE [Suspect]
     Active Substance: COLCHICINE
     Indication: Autoinflammatory disease
     Dosage: 1 MILLIGRAM, BID (IN MARCH 2014 BREAK (LENGTH OF BREAK UNKNOWN))
     Route: 048
     Dates: start: 2017, end: 20240601
  5. KINERET [Suspect]
     Active Substance: ANAKINRA
     Indication: Autoinflammatory disease
     Dosage: 100 MILLIGRAM, QD (IN MARCH 2024 EVERY 3 DAYS)
     Route: 058
     Dates: start: 202204, end: 20241001
  6. LAMICTAL [Suspect]
     Active Substance: LAMOTRIGINE
     Indication: Product used for unknown indication
     Dosage: 75 MILLIGRAM, BID (100 MG 0.75 MORNING AND EVENING)
     Route: 048
  7. TEGRETOL XR [Suspect]
     Active Substance: CARBAMAZEPINE
     Indication: Product used for unknown indication
     Dosage: 200 MILLIGRAM, QD (200 MG 1 TAB IN THE EVENING)
     Route: 048
  8. Mydocalm [Concomitant]
     Dosage: 50 MILLIGRAM, QD
     Route: 048
  9. METOPROLOL SUCCINATE [Concomitant]
     Active Substance: METOPROLOL SUCCINATE
     Dosage: 25 MILLIGRAM, BID (25 MG 1 TAB MORNING AND EVENING
     Route: 048
  10. CYKLOKAPRON [Concomitant]
     Active Substance: TRANEXAMIC ACID
     Indication: Haemorrhage
     Dosage: 1000 MILLIGRAM, Q8H (500 MG 2 TAB MORNING MIDDAY AND EVENING)
     Route: 065
  11. MAGNESIUM ASPARTATE HYDROCHLORIDE [Concomitant]
     Active Substance: MAGNESIUM ASPARTATE HYDROCHLORIDE
     Dosage: 10 MILLIMOLE, QD (10 MMOL 1 TAB AT MIDDAY)
     Route: 048
  12. CALCIUM\CHOLECALCIFEROL [Concomitant]
     Active Substance: CALCIUM\CHOLECALCIFEROL
     Dosage: 1 DOSAGE FORM, QD (500 MG/800 IU 1 AT MIDDAY)
     Route: 048
  13. DUSPATALIN RETARD [Concomitant]
     Dosage: 200 MILLIGRAM, BID (200 MG 1 MORNING AND EVENING
     Route: 048
  14. FACTOR XIII CONCENTRATE (HUMAN) [Concomitant]
     Active Substance: FACTOR XIII CONCENTRATE (HUMAN)
     Dosage: UNK UNK, Q2W (1250 E/20 ML EVERY 2 WEEKS IV)
     Route: 042
  15. VENOFER [Concomitant]
     Active Substance: IRON SUCROSE
     Indication: Iron deficiency
     Dosage: UNK, Q2W (20 MG/ML EVERY 2 WEEKS, IV
     Route: 042
  16. NASONEX [Concomitant]
     Active Substance: MOMETASONE FUROATE
     Dosage: 2 DOSAGE FORM, BID (50 ?G/SPRAY NASAL SPRAY 2  SPRAYS MORNING AND EVENING INTO EACH NOSTRIL)
     Route: 045
  17. FLUTICASONE FUROATE\VILANTEROL TRIFENATATE [Concomitant]
     Active Substance: FLUTICASONE FUROATE\VILANTEROL TRIFENATATE
     Dosage: UNK UNK, QD (99/22 ?G 1 IN THE MORNING)
     Route: 055
  18. CYCLOSPORINE [Concomitant]
     Active Substance: CYCLOSPORINE
     Dosage: 1 DOSAGE FORM, BID (1 MG/ML EYE DROPS 1 DROP INTO EACH EYE MORNING AND EVENING)
     Route: 047
  19. CARBOMER [Concomitant]
     Active Substance: CARBOMER
     Dosage: 1 DOSAGE FORM, BID (2 MG/G EYE GEL 1 DROP INTO EACH EYE MORNING AND EVENING)
     Route: 047
  20. Vitamin a blache [Concomitant]
     Dosage: UNK UNK, QD (0.5 CM BOTH EYES IN THE EVENING)
     Route: 065
  21. HYALURONATE SODIUM [Concomitant]
     Active Substance: HYALURONATE SODIUM
     Dosage: 1 DOSAGE FORM, Q6H (2 MG/ML EYE DROPS 1 DROP INTO  RIGHT EYE MORNING MIDDAY EVENING AND AT NIGHT)
     Route: 047
  22. HYDROCORTISONE SODIUM PHOSPHATE [Concomitant]
     Active Substance: HYDROCORTISONE SODIUM PHOSPHATE
     Dosage: 1 DOSAGE FORM, BID (3.35 MG/ML EYE DROPS 1 DROP INTO EACH EYE MORNING AND EVENING)
     Route: 047

REACTIONS (1)
  - Bicytopenia [Recovering/Resolving]

NARRATIVE: CASE EVENT DATE: 20220101
